FAERS Safety Report 6010070-5 (Version None)
Quarter: 2008Q4

REPORT INFORMATION
  Report Type: 
  Country: None (occurrence: None)
  Receive Date: 20081216
  Receipt Date: 20081208
  Transmission Date: 20090506
  Serious: Yes (Life-Threatening, Hospitalization)
  Sender: FDA-Public Use
  Company Number: 230055M08DEU

PATIENT
  Age: 53 Year
  Sex: Female

DRUGS (12)
  1. REBIF [Suspect]
     Indication: ENCEPHALITIS
     Dosage: SEE IMAGE
     Route: 058
     Dates: start: 20040101, end: 20070101
  2. REBIF [Suspect]
     Indication: MULTIPLE SCLEROSIS
     Dosage: SEE IMAGE
     Route: 058
     Dates: start: 20040101, end: 20070101
  3. REBIF [Suspect]
     Indication: ENCEPHALITIS
     Dosage: SEE IMAGE
     Route: 058
     Dates: start: 20070101, end: 20080925
  4. REBIF [Suspect]
     Indication: MULTIPLE SCLEROSIS
     Dosage: SEE IMAGE
     Route: 058
     Dates: start: 20070101, end: 20080925
  5. LYRICA [Concomitant]
  6. NEBIVOLOL HCL [Concomitant]
  7. TORSEMIDE [Concomitant]
  8. EFEROX (LEVOTHYROXINE SODIUM) [Concomitant]
  9. CLINDAMYCIN HCL [Concomitant]
  10. TIMONIL SYRUP(CARBAMAZEPINE) [Concomitant]
  11. NOVALGIN(METAMIZOLE SODIUM) [Concomitant]
  12. TRAMADOL HYDROHLORIDE [Concomitant]

REACTIONS (4)
  - ANAPHYLACTOID REACTION [None]
  - BLOOD THYROID STIMULATING HORMONE DECREASED [None]
  - TOOTH ABSCESS [None]
  - URINARY TRACT INFECTION [None]
